FAERS Safety Report 4313558-8 (Version None)
Quarter: 2004Q1

REPORT INFORMATION
  Report Type: 
  Country: None (occurrence: None)
  Receive Date: 20040304
  Receipt Date: 20040212
  Transmission Date: 20041129
  Serious: Yes (Other)
  Sender: FDA-Public Use
  Company Number: USA031153349

PATIENT
  Age: 81 Year
  Sex: Male

DRUGS (1)
  1. XIGRIS [Suspect]
     Indication: SEPSIS
     Dates: start: 20031117

REACTIONS (3)
  - DISEASE RECURRENCE [None]
  - INTESTINAL GANGRENE [None]
  - SEPSIS [None]
